FAERS Safety Report 23085753 (Version 1)
Quarter: 2023Q4

REPORT INFORMATION
  Report Type: Report from Study
  Country: US (occurrence: US)
  Receive Date: 20231019
  Receipt Date: 20231019
  Transmission Date: 20240109
  Serious: Yes (Other)
  Sender: FDA-Public Use
  Company Number: US-JAZZ PHARMACEUTICALS-2023-US-019148

PATIENT
  Sex: Female

DRUGS (7)
  1. XYWAV [Suspect]
     Active Substance: CALCIUM OXYBATE\MAGNESIUM OXYBATE\POTASSIUM OXYBATE\SODIUM OXYBATE
     Indication: Narcolepsy
     Dosage: 4.5 GRAM, BID
  2. XYWAV [Suspect]
     Active Substance: CALCIUM OXYBATE\MAGNESIUM OXYBATE\POTASSIUM OXYBATE\SODIUM OXYBATE
     Indication: Cataplexy
     Dosage: 3.6G FIRST DOSE, 3.75G SECOND DOSE
  3. XYWAV [Suspect]
     Active Substance: CALCIUM OXYBATE\MAGNESIUM OXYBATE\POTASSIUM OXYBATE\SODIUM OXYBATE
     Indication: Somnolence
     Dosage: 3.75 GRAM, BID
  4. XYWAV [Suspect]
     Active Substance: CALCIUM OXYBATE\MAGNESIUM OXYBATE\POTASSIUM OXYBATE\SODIUM OXYBATE
     Dosage: 3.5 GRAM, BID
  5. XYWAV [Suspect]
     Active Substance: CALCIUM OXYBATE\MAGNESIUM OXYBATE\POTASSIUM OXYBATE\SODIUM OXYBATE
     Dosage: 3.6G FIRST DOSE, 3.75G SECOND DOSE
  6. MODAFINIL [Concomitant]
     Active Substance: MODAFINIL
     Indication: Product used for unknown indication
     Dosage: 200 MILLIGRAM
  7. MODAFINIL [Concomitant]
     Active Substance: MODAFINIL
     Dosage: 300 MILLIGRAM

REACTIONS (13)
  - Weight decreased [Unknown]
  - Daydreaming [Unknown]
  - Obsessive-compulsive disorder [Unknown]
  - Attention deficit hyperactivity disorder [Unknown]
  - Enuresis [Unknown]
  - Abnormal dreams [Unknown]
  - Dizziness [Unknown]
  - Feeling drunk [Unknown]
  - Memory impairment [Unknown]
  - Nocturia [Unknown]
  - Weight increased [Unknown]
  - Decreased appetite [Unknown]
  - Product administration interrupted [Unknown]
